FAERS Safety Report 12403207 (Version 1)
Quarter: 2016Q2

REPORT INFORMATION
  Report Type: Spontaneous
  Country: US (occurrence: US)
  Receive Date: 20160525
  Receipt Date: 20160525
  Transmission Date: 20160815
  Serious: Yes (Other)
  Sender: FDA-Public Use
  Company Number: US-009507513-1605USA009154

PATIENT
  Age: 21 Year
  Sex: Female
  Weight: 52.15 kg

DRUGS (1)
  1. NUVARING [Suspect]
     Active Substance: ETHINYL ESTRADIOL\ETONOGESTREL
     Indication: CONTRACEPTION
     Dosage: 1 RING, 3WEEKS / 1 WEEK
     Route: 067

REACTIONS (3)
  - Device expulsion [Not Recovered/Not Resolved]
  - Inappropriate schedule of drug administration [Unknown]
  - Haemorrhage [Not Recovered/Not Resolved]
